FAERS Safety Report 8294853-7 (Version None)
Quarter: 2012Q2

REPORT INFORMATION
  Report Type: 
  Country: None (occurrence: None)
  Receive Date: 20120418
  Receipt Date: 20120416
  Transmission Date: 20120825
  Serious: Yes (Other)
  Sender: FDA-Public Use
  Company Number: US-PFIZER INC-2012094604

PATIENT

DRUGS (2)
  1. CYKLOKAPRON [Suspect]
     Indication: PROCOAGULANT THERAPY
     Dosage: 1000 MG, UNK
     Route: 042
     Dates: start: 20120301, end: 20120301
  2. LOVENOX [Suspect]
     Indication: THROMBOSIS PROPHYLAXIS
     Dosage: UNK
     Dates: start: 20120301

REACTIONS (1)
  - PULMONARY EMBOLISM [None]
